FAERS Safety Report 8515000 (Version 2)
Quarter: 2012Q4

REPORT INFORMATION
  Report Type: Report from Study
  Country: NL (occurrence: NL)
  Receive Date: 20120416
  Receipt Date: 20121017
  Transmission Date: 20130627
  Serious: Yes (Hospitalization)
  Sender: FDA-Public Use
  Company Number: NL-BAXTER-2012BAX002238

PATIENT
  Age: 65 Year
  Sex: Female
  Weight: 72 kg

DRUGS (15)
  1. ENDOXAN I.V., POEDER VOOR OPLOSSING VOOR INJECTIE 200, 500, 1000 MG [Suspect]
     Indication: DIFFUSE LARGE B-CELL LYMPHOMA
     Route: 042
     Dates: start: 20120214
  2. ENDOXAN I.V., POEDER VOOR OPLOSSING VOOR INJECTIE 200, 500, 1000 MG [Suspect]
     Route: 042
     Dates: start: 20120218
  3. RITUXIMAB [Suspect]
     Indication: DIFFUSE LARGE B-CELL LYMPHOMA
     Route: 042
     Dates: start: 20120214
  4. RITUXIMAB [Suspect]
     Route: 042
     Dates: start: 20120219
  5. DOXORUBICIN [Suspect]
     Indication: DIFFUSE LARGE B-CELL LYMPHOMA
     Route: 042
     Dates: start: 20120214
  6. VINCRISTINE [Suspect]
     Indication: DIFFUSE LARGE B-CELL LYMPHOMA
     Route: 042
     Dates: start: 20120214
  7. G-CSF [Suspect]
     Indication: DIFFUSE LARGE B-CELL LYMPHOMA
     Route: 058
     Dates: start: 20120215
  8. PREDNISONE [Suspect]
     Indication: DIFFUSE LARGE B-CELL LYMPHOMA
     Route: 048
     Dates: start: 20120214
  9. PREDNISONE [Suspect]
     Route: 048
     Dates: start: 20120218
  10. COTRIMOXAZOLE [Concomitant]
     Indication: PROPHYLAXIS
     Dosage: 160/800 MG
     Route: 048
     Dates: start: 20120126
  11. COTRIMOXAZOLE [Concomitant]
     Dosage: 160/800 MG
     Route: 048
     Dates: start: 20120227
  12. VALACYCLOVIR HYDROCHLORIDE [Concomitant]
     Indication: PROPHYLAXIS
     Route: 048
     Dates: start: 20120126
  13. VALACYCLOVIR HYDROCHLORIDE [Concomitant]
     Route: 048
     Dates: start: 20120227
  14. METOCLOPRAMIDE [Concomitant]
     Indication: NAUSEA
     Route: 048
     Dates: start: 20120131
  15. METOCLOPRAMIDE [Concomitant]
     Route: 048
     Dates: start: 20120227

REACTIONS (1)
  - Dehydration [Recovered/Resolved]
